FAERS Safety Report 15357183 (Version 2)
Quarter: 2018Q3

REPORT INFORMATION
  Report Type: Report from Study
  Country: LT (occurrence: LT)
  Receive Date: 20180906
  Receipt Date: 20180917
  Transmission Date: 20181010
  Serious: Yes (Death, Other)
  Sender: FDA-Public Use
  Company Number: PHHY2018LT089454

PATIENT
  Age: 83 Year
  Sex: Male
  Weight: 69 kg

DRUGS (13)
  1. TORASEMIDE [Concomitant]
     Active Substance: TORSEMIDE
     Dosage: 20 MG, QD
     Route: 065
  2. KCL [Concomitant]
     Active Substance: POTASSIUM CHLORIDE
     Indication: PRODUCT USED FOR UNKNOWN INDICATION
     Dosage: 750 MG, QD
     Route: 065
  3. TORASEMIDE [Concomitant]
     Active Substance: TORSEMIDE
     Indication: PRODUCT USED FOR UNKNOWN INDICATION
     Dosage: 20 MG, UNK
     Route: 042
  4. ENTRESTO [Suspect]
     Active Substance: SACUBITRIL\VALSARTAN
     Indication: CARDIAC FAILURE
  5. RANOLAZINE. [Concomitant]
     Active Substance: RANOLAZINE
     Indication: PRODUCT USED FOR UNKNOWN INDICATION
     Dosage: 500 MG, BID
     Route: 065
  6. TORASEMIDE [Concomitant]
     Active Substance: TORSEMIDE
     Dosage: 50 MG, QD
     Route: 065
  7. METOPROLOL. [Concomitant]
     Active Substance: METOPROLOL
     Indication: PRODUCT USED FOR UNKNOWN INDICATION
     Dosage: 47.5 MG, QD
     Route: 065
  8. DABIGATRAN [Concomitant]
     Active Substance: DABIGATRAN
     Indication: PRODUCT USED FOR UNKNOWN INDICATION
     Dosage: 110 MG, BID
     Route: 065
  9. CLOPIDOGREL [Concomitant]
     Active Substance: CLOPIDOGREL BISULFATE
     Indication: PRODUCT USED FOR UNKNOWN INDICATION
     Dosage: 75 MG, QD
     Route: 065
  10. KCL [Concomitant]
     Active Substance: POTASSIUM CHLORIDE
     Indication: PRODUCT USED FOR UNKNOWN INDICATION
     Dosage: 30 ML, BID
     Route: 065
  11. ENTRESTO [Suspect]
     Active Substance: SACUBITRIL\VALSARTAN
     Indication: ANGINA UNSTABLE
     Dosage: 50 MG (24 MG SACUBITRIL, 26 MG VALSARTAN), BID
     Route: 048
     Dates: start: 20180314, end: 20180828
  12. SPIRONOLACTONE. [Concomitant]
     Active Substance: SPIRONOLACTONE
     Indication: PRODUCT USED FOR UNKNOWN INDICATION
     Dosage: 25 MG, QD
     Route: 065
  13. ATORVASTATIN [Concomitant]
     Active Substance: ATORVASTATIN
     Indication: PRODUCT USED FOR UNKNOWN INDICATION
     Dosage: 20 MG, QD
     Route: 065

REACTIONS (39)
  - Generalised oedema [Fatal]
  - Aortic aneurysm [Unknown]
  - Haemoglobin decreased [Unknown]
  - Monocyte percentage decreased [Unknown]
  - Multiple organ dysfunction syndrome [Unknown]
  - Hydrothorax [Unknown]
  - Coronary artery disease [Unknown]
  - Haematocrit decreased [Unknown]
  - Neutrophil percentage increased [Unknown]
  - Blood urea increased [Unknown]
  - Aortic valve disease mixed [Fatal]
  - C-reactive protein increased [Unknown]
  - Fibrin D dimer increased [Unknown]
  - Red blood cell count decreased [Unknown]
  - Troponin I increased [Unknown]
  - Protein total decreased [Unknown]
  - Low density lipoprotein increased [Unknown]
  - Cardiac failure [Fatal]
  - Cardiac arrest [Unknown]
  - Pulmonary hypertension [Unknown]
  - Red cell distribution width increased [Unknown]
  - High density lipoprotein increased [Unknown]
  - Dyslipidaemia [Unknown]
  - Amylase decreased [Unknown]
  - Blood creatinine increased [Unknown]
  - Activated partial thromboplastin time prolonged [Unknown]
  - Left ventricular failure [Fatal]
  - Acute kidney injury [Unknown]
  - Hyperkalaemia [Unknown]
  - Lymphocyte percentage increased [Unknown]
  - Monocyte percentage increased [Unknown]
  - Blood glucose increased [Unknown]
  - Encephalopathy [Unknown]
  - Heart rate decreased [Unknown]
  - Eosinophil percentage increased [Unknown]
  - Prothrombin level decreased [Unknown]
  - Dyspnoea [Fatal]
  - Acute respiratory failure [Unknown]
  - Tricuspid valve disease [Unknown]

NARRATIVE: CASE EVENT DATE: 20180820
